FAERS Safety Report 17890381 (Version 2)
Quarter: 2020Q3

REPORT INFORMATION
  Report Type: Spontaneous
  Country: CH (occurrence: CH)
  Receive Date: 20200612
  Receipt Date: 20200701
  Transmission Date: 20201103
  Serious: Yes (Other)
  Sender: FDA-Public Use
  Company Number: CH-ROCHE-2615647

PATIENT
  Age: 47 Year
  Sex: Female
  Weight: 62 kg

DRUGS (2)
  1. DEXAMETHASON [DEXAMETHASONE] [Concomitant]
     Active Substance: DEXAMETHASONE
     Indication: PREMEDICATION
     Route: 042
     Dates: start: 20200220, end: 20200604
  2. KADCYLA [Suspect]
     Active Substance: ADO-TRASTUZUMAB EMTANSINE
     Indication: HER2 POSITIVE BREAST CANCER
     Route: 042
     Dates: start: 20200220, end: 20200604

REACTIONS (1)
  - Keratopathy [Not Recovered/Not Resolved]

NARRATIVE: CASE EVENT DATE: 202005
